FAERS Safety Report 8808011 (Version 3)
Quarter: 2012Q4

REPORT INFORMATION
  Report Type: 
  Country: DE (occurrence: DE)
  Receive Date: 20120925
  Receipt Date: 20121128
  Transmission Date: 20130627
  Serious: Yes (Other)
  Sender: FDA-Public Use
  Company Number: DE-JNJFOC-20120908096

PATIENT
  Sex: Female
  Weight: 70 kg

DRUGS (6)
  1. RISPERDAL CONSTA [Suspect]
     Indication: SCHIZOPHRENIA
     Route: 030
  2. ORFIRIL [Suspect]
     Indication: SCHIZOPHRENIA
     Route: 048
  3. ORFIRIL [Suspect]
     Indication: SCHIZOPHRENIA
     Dosage: 1000 (unit unspecified)
     Route: 048
  4. RAMIPRIL [Suspect]
     Indication: PRODUCT USED FOR UNKNOWN INDICATION
     Dosage: 2.5 (unit unspecified)
     Route: 065
  5. VALPROIC ACID [Concomitant]
     Indication: SCHIZOPHRENIA
     Route: 065
  6. L-THYROXIN [Concomitant]
     Dosage: 100 (unit unspecified)
     Route: 048

REACTIONS (2)
  - Hyponatraemia [Unknown]
  - Electrolyte imbalance [Unknown]
